FAERS Safety Report 4650261-9 (Version None)
Quarter: 2005Q2

REPORT INFORMATION
  Report Type: 
  Country: None (occurrence: None)
  Receive Date: 20050331
  Receipt Date: 20050201
  Transmission Date: 20051028
  Serious: No
  Sender: FDA-Public Use
  Company Number: 05P-163-0289022-00

PATIENT
  Age: 29 Year
  Sex: Female

DRUGS (14)
  1. HUMIRA [Suspect]
     Indication: RHEUMATOID ARTHRITIS
     Dosage: 40 MG, 1 IN 2 WK, SUBCUTANEOUS
     Route: 058
     Dates: start: 20050131
  2. ADVAIR DISKUS 100/50 [Concomitant]
  3. PROVENTIL [Concomitant]
  4. LORATADINE [Concomitant]
  5. FAMOTIDINE [Concomitant]
  6. OMEPRAZOLE [Concomitant]
  7. PSEUDOEPHEDRINE HYDROCHLORIDE [Concomitant]
  8. FOLIC ACID [Concomitant]
  9. VITAMIN B COMPLEX CAP [Concomitant]
  10. CALCIUM GLUCONATE [Concomitant]
  11. ASCORBIC ACID [Concomitant]
  12. PARACETAMOL [Concomitant]
  13. DARVOCET [Concomitant]
  14. CYCLOBENZAPRINE HYDROCHLORIDE [Concomitant]

REACTIONS (1)
  - INJECTION SITE IRRITATION [None]
